FAERS Safety Report 4768611-1 (Version None)
Quarter: 2005Q3

REPORT INFORMATION
  Report Type: 
  Country: None (occurrence: None)
  Receive Date: 20050914
  Receipt Date: 20050906
  Transmission Date: 20060218
  Serious: Yes (Other)
  Sender: FDA-Public Use
  Company Number: PHBS2005IT13202

PATIENT
  Age: 70 Year
  Sex: Male

DRUGS (2)
  1. ZOMETA [Suspect]
     Indication: OSTEOLYSIS
     Dosage: 4 MG, QMO
     Route: 042
     Dates: start: 20050101, end: 20050501
  2. THALIDOMIDE [Concomitant]
     Dosage: 200 MG/D
     Route: 048
     Dates: start: 20040201, end: 20050905

REACTIONS (4)
  - ASEPTIC NECROSIS BONE [None]
  - BONE DEBRIDEMENT [None]
  - BONE DISORDER [None]
  - TOOTH EXTRACTION [None]
